FAERS Safety Report 6036913-7 (Version None)
Quarter: 2009Q1

REPORT INFORMATION
  Report Type: 
  Country: None (occurrence: None)
  Receive Date: 20090114
  Receipt Date: 20081230
  Transmission Date: 20090719
  Serious: Yes (Other)
  Sender: FDA-Public Use
  Company Number: US-BAYER-200910436GPV

PATIENT
  Age: 12 Year
  Sex: Female

DRUGS (3)
  1. FLUDARABINE PHOSPHATE [Suspect]
     Indication: BONE MARROW TRANSPLANT
     Route: 065
  2. MELPHALAN [Suspect]
     Indication: BONE MARROW TRANSPLANT
  3. THIOTEPA [Suspect]
     Indication: BONE MARROW TRANSPLANT

REACTIONS (2)
  - AXONAL NEUROPATHY [None]
  - SPINAL CORD DISORDER [None]
